FAERS Safety Report 17367035 (Version 1)
Quarter: 2020Q1

REPORT INFORMATION
  Report Type: Spontaneous
  Country: FR (occurrence: FR)
  Receive Date: 20200204
  Receipt Date: 20200204
  Transmission Date: 20200409
  Serious: Yes (Hospitalization, Other)
  Sender: FDA-Public Use
  Company Number: FR-PFIZER INC-2020040726

PATIENT
  Age: 88 Year
  Sex: Female

DRUGS (17)
  1. CLINDAMYCIN HCL [Suspect]
     Active Substance: CLINDAMYCIN HYDROCHLORIDE
     Indication: DERMATITIS
     Dosage: 300 MG, 3X/DAY
     Route: 048
     Dates: start: 20190927, end: 20190930
  2. MYDRIATICUM [Suspect]
     Active Substance: TROPICAMIDE
     Dosage: UNK
  3. NATISEDIN [Suspect]
     Active Substance: QUINIDINE PHENOBARBITAL
     Dosage: UNK
  4. PHENYLEPHRINE HYDROCHLORIDE. [Suspect]
     Active Substance: PHENYLEPHRINE HYDROCHLORIDE
     Dosage: UNK
  5. COUMADINE [Concomitant]
     Active Substance: WARFARIN SODIUM
     Dosage: UNK
  6. FUROSEMIDE. [Concomitant]
     Active Substance: FUROSEMIDE
     Dosage: UNK
  7. CORDARONE [Concomitant]
     Active Substance: AMIODARONE HYDROCHLORIDE
     Dosage: 200 MG
  8. TETRALYSAL [LYMECYCLINE] [Suspect]
     Active Substance: LYMECYCLINE
     Dosage: UNK
  9. AMOXICILLIN TRIHYDRATE [Suspect]
     Active Substance: AMOXICILLIN
     Dosage: UNK
  10. TRAMADOL. [Concomitant]
     Active Substance: TRAMADOL
     Dosage: UNK
  11. BISOCE [Concomitant]
     Active Substance: BISOPROLOL
     Dosage: 2.5 MG
  12. PYOSTACINE [Suspect]
     Active Substance: PRISTINAMYCIN
     Dosage: UNK
  13. RIVAROXABAN [Suspect]
     Active Substance: RIVAROXABAN
     Dosage: UNK
  14. CALCIDOSE [CALCIUM CARBONATE] [Concomitant]
     Active Substance: CALCIUM CARBONATE
     Dosage: UNK
  15. CODOLIPRANE [Suspect]
     Active Substance: ACETAMINOPHEN\CODEINE PHOSPHATE
     Dosage: UNK
  16. MACROGOL [Concomitant]
     Active Substance: POLYETHYLENE GLYCOLS
     Dosage: UNK
  17. DOLIPRANE [Concomitant]
     Active Substance: ACETAMINOPHEN
     Dosage: UNK

REACTIONS (4)
  - Drug hypersensitivity [Unknown]
  - Cholestasis [Recovered/Resolved]
  - Contraindicated product administered [Unknown]
  - Rash maculo-papular [Recovered/Resolved]

NARRATIVE: CASE EVENT DATE: 20190930
